FAERS Safety Report 11821015 (Version 1)
Quarter: 2015Q4

REPORT INFORMATION
  Report Type: Spontaneous
  Country: US (occurrence: US)
  Receive Date: 20151210
  Receipt Date: 20151210
  Transmission Date: 20160305
  Serious: Yes (Hospitalization)
  Sender: FDA-Public Use
  Company Number: US-JNJFOC-20150800142

PATIENT
  Sex: Female

DRUGS (6)
  1. OXYCODONE [Concomitant]
     Active Substance: OXYCODONE
  2. LORAZEPAM. [Concomitant]
     Active Substance: LORAZEPAM
  3. DOCUSATE SODIUM. [Concomitant]
     Active Substance: DOCUSATE SODIUM
  4. ASPIRIN. [Concomitant]
     Active Substance: ASPIRIN
  5. MIRALAX [Concomitant]
     Active Substance: POLYETHYLENE GLYCOL 3350
  6. IMBRUVICA [Suspect]
     Active Substance: IBRUTINIB
     Indication: LYMPHOMA
     Route: 048
     Dates: start: 20140123

REACTIONS (5)
  - Kidney infection [Unknown]
  - Asthenia [Unknown]
  - Off label use [Unknown]
  - Pneumonia [Unknown]
  - Urinary tract infection [Unknown]
